FAERS Safety Report 12213061 (Version 1)
Quarter: 2016Q1

REPORT INFORMATION
  Report Type: Spontaneous
  Country: US (occurrence: None)
  Receive Date: 20160325
  Receipt Date: 20160325
  Transmission Date: 20160526
  Serious: No
  Sender: FDA-Public Use
  Company Number: None

PATIENT
  Age: 76 Year
  Sex: Female
  Weight: 117.94 kg

DRUGS (11)
  1. REPATHA [Suspect]
     Active Substance: EVOLOCUMAB
     Indication: LIPIDS INCREASED
     Dates: start: 20151221, end: 20151221
  2. LUTEIN [Concomitant]
     Active Substance: LUTEIN
  3. OMEPRAZOLE. [Concomitant]
     Active Substance: OMEPRAZOLE
  4. MALIC ACID [Concomitant]
     Active Substance: MALIC ACID
  5. WELCHOL [Concomitant]
     Active Substance: COLESEVELAM HYDROCHLORIDE
  6. BYSTOLIC [Concomitant]
     Active Substance: NEBIVOLOL HYDROCHLORIDE
  7. BRYONIA ALBA [Concomitant]
  8. ORACEA [Concomitant]
     Active Substance: DOXYCYCLINE
  9. CLOPIDOGREL [Concomitant]
     Active Substance: CLOPIDOGREL BISULFATE
  10. FOSINOPRIL [Concomitant]
     Active Substance: FOSINOPRIL
  11. TYLENOL ARTHRITIS PAIN [Concomitant]
     Active Substance: ACETAMINOPHEN

REACTIONS (5)
  - Sneezing [None]
  - Influenza [None]
  - Myalgia [None]
  - Oropharyngeal pain [None]
  - Pulmonary congestion [None]

NARRATIVE: CASE EVENT DATE: 20151221
